FAERS Safety Report 5114140-5 (Version None)
Quarter: 2006Q3

REPORT INFORMATION
  Report Type: 
  Country: None (occurrence: None)
  Receive Date: 20060925
  Receipt Date: 20060919
  Transmission Date: 20061208
  Serious: Yes (Death, Hospitalization)
  Sender: FDA-Public Use
  Company Number: US-BRISTOL-MYERS SQUIBB COMPANY-13514799

PATIENT
  Age: 59 Year
  Sex: Female
  Weight: 87 kg

DRUGS (17)
  1. ORENCIA [Suspect]
     Indication: RHEUMATOID ARTHRITIS
     Route: 042
     Dates: start: 20060619, end: 20060717
  2. METHOTREXATE [Concomitant]
     Dates: start: 20050201
  3. ARAVA [Concomitant]
     Dates: start: 20060301
  4. PREDNISONE TAB [Concomitant]
     Dates: start: 20040801
  5. LANTUS [Concomitant]
  6. COUMADIN [Concomitant]
     Indication: DEEP VEIN THROMBOSIS
     Dosage: DOSAGE FORM = 1/2 OF A 5MG TABLET DAILY PLUS 1 TABLET ONCE WEEKLY
  7. ZESTRIL [Concomitant]
  8. AMITRIPTYLINE HCL [Concomitant]
     Dosage: AT BEDTIME
  9. PROZAC [Concomitant]
  10. ZANAFLEX [Concomitant]
     Dosage: 4MG TABLETS - 2 AT BEDTIME
  11. METAGLIP [Concomitant]
     Dosage: DOSE UNKNOWN
  12. MULTI-VITAMIN [Concomitant]
  13. TALWIN NX [Concomitant]
     Indication: PAIN
     Dosage: 2 TO 3 TABLETS DAILY FOR PAIN
  14. FOLIC ACID [Concomitant]
     Dosage: 1MG, 2 TABLETS BID
  15. PROMETHAZINE [Concomitant]
     Indication: NAUSEA
  16. CALCIUM GLUCONATE [Concomitant]
  17. ENBREL [Concomitant]
     Dates: start: 20050901

REACTIONS (4)
  - CRYPTOCOCCOSIS [None]
  - PNEUMOCYSTIS JIROVECI PNEUMONIA [None]
  - RENAL FAILURE [None]
  - SEPSIS [None]
